FAERS Safety Report 11900006 (Version 4)
Quarter: 2016Q4

REPORT INFORMATION
  Report Type: Spontaneous
  Country: US (occurrence: US)
  Receive Date: 20160108
  Receipt Date: 20161219
  Transmission Date: 20170206
  Serious: Yes (Hospitalization, Other)
  Sender: FDA-Public Use
  Company Number: US-PFIZER INC-2015476187

PATIENT
  Age: 58 Year
  Sex: Female

DRUGS (28)
  1. PHAZYME [Concomitant]
     Active Substance: DIMETHICONE 410
     Dosage: UNK, AS NEEDED
  2. MOTRIN [Concomitant]
     Active Substance: IBUPROFEN
     Indication: PAIN
     Dosage: 400 MG, 3X/DAY, (WITH FOOD)
     Route: 048
  3. LYRICA [Suspect]
     Active Substance: PREGABALIN
     Dosage: 100 MG, 1X/DAY (EVERY NIGHT AT BEDTIME)
     Route: 048
  4. SUDAFED [Concomitant]
     Active Substance: PSEUDOEPHEDRINE HYDROCHLORIDE
     Dosage: 120 MG, AS NEEDED
     Route: 048
  5. ACIDOPHILUS [Concomitant]
     Active Substance: LACTOBACILLUS ACIDOPHILUS
     Dosage: 1 DF, 1X/DAY
  6. PREMARIN [Concomitant]
     Active Substance: ESTROGENS, CONJUGATED
     Dosage: 0.5 G, 1X/DAY, (VAGINALLY WITH APPLICATOR AT BEDTIME, EVERY NIGHT FOR 1 WEEK)
     Route: 067
  7. PREMARIN [Concomitant]
     Active Substance: ESTROGENS, CONJUGATED
     Dosage: 0.5 G, 2X/DAY, (VAGINALLY WITH APPLICATOR AT BEDTIME, THEN TWICE A WEEK)
     Route: 067
  8. LYRICA [Suspect]
     Active Substance: PREGABALIN
     Indication: HYPOAESTHESIA
     Dosage: 150 MG, UNK
     Route: 048
  9. TOVIAZ [Concomitant]
     Active Substance: FESOTERODINE FUMARATE
     Dosage: 4 MG, DAILY
     Route: 048
  10. BEANO [Concomitant]
     Active Substance: ASPERGILLUS NIGER .ALPHA.-GALACTOSIDASE
     Dosage: UNK, AS NEEDED
  11. MEDROL [Concomitant]
     Active Substance: METHYLPREDNISOLONE
     Dosage: 4 MG, UNK
  12. TENORMIN [Concomitant]
     Active Substance: ATENOLOL
     Dosage: 25 MG, DAILY
  13. LYRICA [Suspect]
     Active Substance: PREGABALIN
     Dosage: 100 MG, DAILY
  14. VITAMIN E [Concomitant]
     Active Substance: .ALPHA.-TOCOPHEROL
     Dosage: 100 IU, DAILY
     Route: 048
  15. LYRICA [Suspect]
     Active Substance: PREGABALIN
     Indication: PARAESTHESIA
     Dosage: 25 MG, 3 TIMES A DAY IN ADDITION TO THE 100 MG CAP AT BED TIME
     Route: 048
  16. LYRICA [Suspect]
     Active Substance: PREGABALIN
     Dosage: 25 MG MORNING, 100 MG BEDTIME
     Route: 048
  17. ATENOLOL. [Concomitant]
     Active Substance: ATENOLOL
     Dosage: 25 MG, UNK
  18. PSYLLIUM [Concomitant]
     Active Substance: PLANTAGO SEED
     Dosage: 0.52 G, 2X/DAY
     Route: 048
  19. ADVIL [Concomitant]
     Active Substance: IBUPROFEN
     Indication: PAIN
     Dosage: UNK, AS NEEDED
  20. BREO ELLIPTA [Concomitant]
     Active Substance: FLUTICASONE FUROATE\VILANTEROL TRIFENATATE
     Dosage: UNK, DAILY, [FLUTICASONE FUROATE - 100 MCG]/ [VILANTEROL - 25 MCG INH],(INHALE 1PUFF BY MOUTH DAILY)
     Route: 048
  21. SIMVASTATIN. [Concomitant]
     Active Substance: SIMVASTATIN
     Dosage: 40 MG, 1X/DAY (AT BEDTIME)
  22. VENTOLIN HFA [Concomitant]
     Active Substance: ALBUTEROL SULFATE
     Indication: WHEEZING
     Dosage: UNK, AS NEEDED (108 (90 BASE) MCG/ACT INHALER/INHALE 2 PUFFS BY MOUTH EVERY 4 HOURS AS NEEDED)
     Route: 048
  23. ACETAMINOPHEN. [Concomitant]
     Active Substance: ACETAMINOPHEN
     Indication: PYREXIA
     Dosage: 650 MG, AS NEEDED, (2 TAB, EVERY 6 HOURS)
     Route: 048
  24. ZOCOR [Concomitant]
     Active Substance: SIMVASTATIN
     Dosage: 40 MG, 1X/DAY, (AT BEDTIME)
  25. REFRESH OPTIVE [Concomitant]
     Active Substance: CARBOXYMETHYLCELLULOSE SODIUM\GLYCERIN
     Dosage: UNK
  26. MOTRIN [Concomitant]
     Active Substance: IBUPROFEN
     Dosage: 800 MG, 3X/DAY, (WITH FOOD)
     Route: 048
  27. MIRALAX [Concomitant]
     Active Substance: POLYETHYLENE GLYCOL 3350
     Dosage: 17 G, DAILY
     Route: 048
  28. PROMETHAZINE DM [Concomitant]
     Active Substance: DEXTROMETHORPHAN HYDROBROMIDE\PROMETHAZINE HYDROCHLORIDE
     Indication: COUGH
     Dosage: 5 ML, AS NEEDED, [DEXTROMETHORPHAN HYDROBROMIDE15MG]/ [PROMETHAZINE HYDROCHLORIDE 6.25MG] (4 TIME)
     Route: 048

REACTIONS (6)
  - Drug intolerance [Recovered/Resolved]
  - Pyrexia [Recovered/Resolved]
  - Pneumonia [Recovered/Resolved]
  - Drug ineffective [Recovered/Resolved]
  - Productive cough [Recovered/Resolved]
  - Chills [Recovered/Resolved]

NARRATIVE: CASE EVENT DATE: 20151227
